FAERS Safety Report 9013960 (Version 1)
Quarter: 2013Q1

REPORT INFORMATION
  Report Type: Spontaneous
  Country: US (occurrence: None)
  Receive Date: 20130109
  Receipt Date: 20130109
  Transmission Date: 20140127
  Serious: Yes (Hospitalization)
  Sender: FDA-Public Use
  Company Number: None

PATIENT
  Age: 62 Year
  Sex: Female
  Weight: 150.8 kg

DRUGS (1)
  1. AZILECT, 1 MG [Suspect]
     Route: 048
     Dates: start: 20120501, end: 20121101

REACTIONS (2)
  - Chest pain [None]
  - Chest discomfort [None]
